FAERS Safety Report 13415819 (Version 1)
Quarter: 2017Q2

REPORT INFORMATION
  Report Type: Spontaneous
  Country: ES (occurrence: ES)
  Receive Date: 20170407
  Receipt Date: 20170407
  Transmission Date: 20170830
  Serious: Yes (Life-Threatening, Hospitalization)
  Sender: FDA-Public Use
  Company Number: ES-JNJFOC-20170406361

PATIENT
  Age: 78 Year
  Sex: Male

DRUGS (7)
  1. VANDRAL [Suspect]
     Active Substance: VENLAFAXINE HYDROCHLORIDE
     Indication: PRODUCT USED FOR UNKNOWN INDICATION
     Dosage: HALF TABLET OF 5 MG IN THE EVENING
     Route: 048
     Dates: start: 20170301
  2. RISPERDAL [Suspect]
     Active Substance: RISPERIDONE
     Indication: DEMENTIA
     Dosage: 0.5 MG EACH IN THE MORNING AND AT NOON AND 1 MG IN THE EVENING
     Route: 048
     Dates: start: 20170301
  3. RISPERDAL [Suspect]
     Active Substance: RISPERIDONE
     Indication: DEMENTIA
     Dosage: DOSE REDUCED
     Route: 048
  4. ALPRAZOLAM. [Suspect]
     Active Substance: ALPRAZOLAM
     Indication: DEMENTIA
     Dosage: DOSE REDUCED
     Route: 048
     Dates: start: 201703, end: 20170317
  5. ZYPREXA [Suspect]
     Active Substance: OLANZAPINE
     Indication: DEMENTIA
     Dosage: HALF TABLET OF 5 MG IN THE EVENING
     Route: 048
     Dates: start: 20170301
  6. ALPRAZOLAM. [Suspect]
     Active Substance: ALPRAZOLAM
     Indication: DEMENTIA
     Dosage: 0.5 MG AT NOON AND 1 MG IN THE EVENING
     Route: 048
     Dates: start: 20170301, end: 201703
  7. SEGURIL [Concomitant]
     Active Substance: FUROSEMIDE
     Indication: HYPERTENSION
     Dosage: HALF TABLET OF 5 MG IN THE EVENING
     Route: 048
     Dates: start: 20160216

REACTIONS (3)
  - General physical health deterioration [Recovering/Resolving]
  - Sedation [Recovering/Resolving]
  - Fall [Recovered/Resolved]

NARRATIVE: CASE EVENT DATE: 20170301
